FAERS Safety Report 9099014 (Version 3)
Quarter: 2014Q2

REPORT INFORMATION
  Report Type: Report from Study
  Country: PT (occurrence: PT)
  Receive Date: 20130214
  Receipt Date: 20140523
  Transmission Date: 20141212
  Serious: Yes (Death, Hospitalization)
  Sender: FDA-Public Use
  Company Number: PT-ROCHE-741545

PATIENT
  Age: 65 Year
  Sex: Male
  Weight: 72 kg

DRUGS (8)
  1. RITUXIMAB [Suspect]
     Indication: RHEUMATOID ARTHRITIS
     Dosage: CONCENTRATE FOR SOLUTION FOR INFUSION - 100 MG/10 ML, DOSE 5 AMPULES OF 100 MG
     Route: 042
     Dates: start: 20100518, end: 20100518
  2. RITUXIMAB [Suspect]
     Dosage: CONCENTRATE FOR SOLUTION FOR INFUSION - 500 MG/50 ML, DOSE 5 AMPOULES OF 100 MG 1000MG EVERY 2 WEEK.
     Route: 042
     Dates: start: 20100518, end: 20100601
  3. RITUXIMAB [Suspect]
     Dosage: 1000 MG OF RITUXIMAB (2 AMPOULES OF MABTHERA 500 MG/50 ML)
     Route: 042
  4. CLOPIDOGREL [Concomitant]
     Indication: CORONARY ARTERY DISEASE
     Route: 048
     Dates: start: 2004, end: 20100908
  5. RISEDRONATE SODIUM [Concomitant]
     Indication: OSTEOPOROSIS
     Route: 048
     Dates: start: 2002, end: 20100908
  6. IMIDAPRIL HYDROCHLORIDE [Concomitant]
     Indication: HYPERTENSION
     Route: 048
     Dates: start: 2005, end: 20100908
  7. PREDNISOLONE [Concomitant]
     Route: 048
     Dates: start: 2001, end: 20100908
  8. METHOTREXATE [Concomitant]
     Route: 058
     Dates: start: 201004, end: 20100908

REACTIONS (1)
  - Pneumonia [Fatal]
